FAERS Safety Report 20171372 (Version 2)
Quarter: 2021Q4

REPORT INFORMATION
  Report Type: Report from Study
  Country: US (occurrence: US)
  Receive Date: 20211210
  Receipt Date: 20211230
  Transmission Date: 20220303
  Serious: Yes (Other)
  Sender: FDA-Public Use
  Company Number: US-INCYTE CORPORATION-2021IN011435

PATIENT

DRUGS (1)
  1. JAKAFI [Suspect]
     Active Substance: RUXOLITINIB
     Indication: Chronic graft versus host disease
     Dosage: 10 MILLIGRAM, BID (2 TABLETS OF 5 MG IN THE MORNING AND 2 TABLETS OF 5 MG IN THE EVENING)
     Route: 048
     Dates: start: 202012

REACTIONS (6)
  - Hip fracture [Not Recovered/Not Resolved]
  - Musculoskeletal disorder [Unknown]
  - Speech disorder [Unknown]
  - Fall [Unknown]
  - Nervous system disorder [Unknown]
  - Off label use [Unknown]

NARRATIVE: CASE EVENT DATE: 20201201
